FAERS Safety Report 5254496-6 (Version None)
Quarter: 2007Q1

REPORT INFORMATION
  Report Type: 
  Country: None (occurrence: None)
  Receive Date: 20070302
  Receipt Date: 20070222
  Transmission Date: 20070707
  Serious: Yes (Other)
  Sender: FDA-Public Use
  Company Number: US-PFIZER INC-2006155554

PATIENT
  Sex: Female
  Weight: 77.1 kg

DRUGS (3)
  1. SERTRALINE [Suspect]
     Indication: ANXIETY
     Route: 048
  2. SERTRALINE [Suspect]
     Indication: DEPRESSION
  3. ORAL CONTRACEPTIVE NOS [Concomitant]
     Dates: start: 20040201

REACTIONS (3)
  - ABDOMINAL PAIN UPPER [None]
  - GLOSSODYNIA [None]
  - SWOLLEN TONGUE [None]
